FAERS Safety Report 6571552-0 (Version None)
Quarter: 2010Q1

REPORT INFORMATION
  Report Type: 
  Country: None (occurrence: None)
  Receive Date: 20100205
  Receipt Date: 20100128
  Transmission Date: 20100710
  Serious: Yes (Other)
  Sender: FDA-Public Use
  Company Number: US-JNJFOC-20091107403

PATIENT
  Sex: Female
  Weight: 81.65 kg

DRUGS (1)
  1. DURAGESIC-100 [Suspect]
     Indication: ARTHRALGIA
     Dosage: 75 UG/HR PLUS 25 UG/HR
     Route: 062
     Dates: start: 20020101, end: 20091101

REACTIONS (3)
  - APPLICATION SITE REACTION [None]
  - DEPRESSION [None]
  - PSORIATIC ARTHROPATHY [None]
